FAERS Safety Report 8836735 (Version 1)
Quarter: 2012Q4

REPORT INFORMATION
  Report Type: 
  Country: US (occurrence: US)
  Receive Date: 20121012
  Receipt Date: 20121012
  Transmission Date: 20130627
  Serious: Yes (Hospitalization)
  Sender: FDA-Public Use
  Company Number: US-ROCHE-1140474

PATIENT
  Age: 15 Year
  Sex: Male
  Weight: 36.1 kg

DRUGS (4)
  1. NUTROPIN AQ [Suspect]
     Indication: CYSTIC FIBROSIS
     Dosage: 0.35 CC
     Route: 065
  2. AMINOSYN [Concomitant]
  3. MULTIVITAMIN [Concomitant]
  4. ALBUTEROL [Concomitant]

REACTIONS (3)
  - Pneumonia [Unknown]
  - Flushing [Unknown]
  - Cough [Unknown]
